FAERS Safety Report 10869584 (Version 23)
Quarter: 2018Q4

REPORT INFORMATION
  Report Type: Spontaneous
  Country: CA (occurrence: CA)
  Receive Date: 20150226
  Receipt Date: 20181211
  Transmission Date: 20190204
  Serious: Yes (Hospitalization, Other)
  Sender: FDA-Public Use
  Company Number: CA-ROCHE-1544517

PATIENT
  Age: 38 Year
  Sex: Male

DRUGS (30)
  1. XOLAIR [Suspect]
     Active Substance: OMALIZUMAB
     Route: 058
     Dates: start: 20150713
  2. XOLAIR [Suspect]
     Active Substance: OMALIZUMAB
     Route: 058
     Dates: start: 20160405
  3. XOLAIR [Suspect]
     Active Substance: OMALIZUMAB
     Route: 058
     Dates: start: 20180713
  4. ORNITHINE ASPARTATE [Concomitant]
     Active Substance: ORNITHINE ASPARTATE
     Indication: PRODUCT USED FOR UNKNOWN INDICATION
     Dosage: UNK
     Route: 065
  5. XOLAIR [Suspect]
     Active Substance: OMALIZUMAB
     Route: 058
     Dates: start: 20170203
  6. XOLAIR [Suspect]
     Active Substance: OMALIZUMAB
     Route: 058
     Dates: start: 20141125
  7. XOLAIR [Suspect]
     Active Substance: OMALIZUMAB
     Route: 058
     Dates: start: 20150629
  8. XOLAIR [Suspect]
     Active Substance: OMALIZUMAB
     Route: 058
     Dates: start: 20150822
  9. XOLAIR [Suspect]
     Active Substance: OMALIZUMAB
     Route: 058
     Dates: start: 20171006
  10. XOLAIR [Suspect]
     Active Substance: OMALIZUMAB
     Route: 058
     Dates: start: 20180629
  11. XOLAIR [Suspect]
     Active Substance: OMALIZUMAB
     Indication: ASTHMA
     Route: 058
     Dates: start: 20130923
  12. XOLAIR [Suspect]
     Active Substance: OMALIZUMAB
     Route: 058
     Dates: start: 20131105
  13. XOLAIR [Suspect]
     Active Substance: OMALIZUMAB
     Route: 058
     Dates: start: 20140401
  14. XOLAIR [Suspect]
     Active Substance: OMALIZUMAB
     Route: 058
     Dates: start: 20180223
  15. FLU VACCINE [Suspect]
     Active Substance: INFLUENZA VIRUS VACCINE
     Route: 065
     Dates: start: 2018
  16. XOLAIR [Suspect]
     Active Substance: OMALIZUMAB
     Route: 058
     Dates: start: 20140318
  17. XOLAIR [Suspect]
     Active Substance: OMALIZUMAB
     Route: 058
     Dates: start: 20140422
  18. XOLAIR [Suspect]
     Active Substance: OMALIZUMAB
     Route: 058
     Dates: start: 20180629
  19. XOLAIR [Suspect]
     Active Substance: OMALIZUMAB
     Route: 058
     Dates: start: 20180223
  20. XOLAIR [Suspect]
     Active Substance: OMALIZUMAB
     Route: 058
     Dates: start: 20140204
  21. XOLAIR [Suspect]
     Active Substance: OMALIZUMAB
     Route: 058
     Dates: start: 20140819
  22. XOLAIR [Suspect]
     Active Substance: OMALIZUMAB
     Route: 058
     Dates: start: 20151203
  23. XOLAIR [Suspect]
     Active Substance: OMALIZUMAB
     Route: 058
     Dates: start: 20160202
  24. XOLAIR [Suspect]
     Active Substance: OMALIZUMAB
     Route: 058
     Dates: start: 20150825
  25. XOLAIR [Suspect]
     Active Substance: OMALIZUMAB
     Route: 058
     Dates: start: 20150910
  26. XOLAIR [Suspect]
     Active Substance: OMALIZUMAB
     Route: 058
     Dates: start: 20171103
  27. XOLAIR [Suspect]
     Active Substance: OMALIZUMAB
     Route: 058
     Dates: start: 20161202
  28. FLU VACCINE [Suspect]
     Active Substance: INFLUENZA VIRUS VACCINE
     Indication: INFLUENZA
     Route: 065
  29. XOLAIR [Suspect]
     Active Substance: OMALIZUMAB
     Route: 058
     Dates: start: 20141104
  30. XOLAIR [Suspect]
     Active Substance: OMALIZUMAB
     Route: 058
     Dates: start: 20141229

REACTIONS (33)
  - Throat irritation [Unknown]
  - Pyrexia [Recovering/Resolving]
  - Pharyngeal paraesthesia [Recovering/Resolving]
  - Dyspnoea [Unknown]
  - Influenza [Recovering/Resolving]
  - Injection site pain [Recovering/Resolving]
  - Chest discomfort [Recovering/Resolving]
  - Sleep apnoea syndrome [Unknown]
  - Hypersensitivity [Recovering/Resolving]
  - Pneumonia [Recovering/Resolving]
  - Respiratory rate decreased [Unknown]
  - Obstructive airways disorder [Unknown]
  - Gastrooesophageal reflux disease [Unknown]
  - Oropharyngeal pain [Recovering/Resolving]
  - Asthma [Recovering/Resolving]
  - Nasopharyngitis [Unknown]
  - Cough [Not Recovered/Not Resolved]
  - Ear pain [Recovering/Resolving]
  - Inflammation [Unknown]
  - Injection site warmth [Recovering/Resolving]
  - Lung disorder [Unknown]
  - Condition aggravated [Unknown]
  - Blood pressure diastolic increased [Not Recovered/Not Resolved]
  - Feeling abnormal [Recovering/Resolving]
  - Malaise [Recovering/Resolving]
  - Bronchitis [Unknown]
  - Ear pruritus [Recovering/Resolving]
  - Wheezing [Not Recovered/Not Resolved]
  - Fatigue [Unknown]
  - Drug effect decreased [Unknown]
  - Arthralgia [Recovered/Resolved]
  - H1N1 influenza [Unknown]
  - Productive cough [Recovering/Resolving]

NARRATIVE: CASE EVENT DATE: 20131105
